FAERS Safety Report 10202201 (Version 1)
Quarter: 2014Q2

REPORT INFORMATION
  Report Type: Spontaneous
  Country: IT (occurrence: IT)
  Receive Date: 20140528
  Receipt Date: 20140528
  Transmission Date: 20141212
  Serious: Yes (Hospitalization)
  Sender: FDA-Public Use
  Company Number: PHHY2014IT060971

PATIENT
  Age: 71 Year
  Sex: Male

DRUGS (2)
  1. RAMIPRIL [Suspect]
     Dosage: 10 MG, QD
     Route: 048
     Dates: start: 20140506, end: 20140509
  2. CARDIOASPIRIN [Concomitant]
     Dosage: 100 MG, UNK

REACTIONS (2)
  - Hypotension [Recovered/Resolved]
  - Tachycardia [Recovered/Resolved]
